FAERS Safety Report 7320519-3 (Version None)
Quarter: 2011Q1

REPORT INFORMATION
  Report Type: 
  Country: None (occurrence: None)
  Receive Date: 20110228
  Receipt Date: 20110201
  Transmission Date: 20110831
  Serious: No
  Sender: FDA-Public Use
  Company Number: US-B.I. PHARMACEUTICALS,INC./RIDGEFIELD-2011-BP-03209BP

PATIENT
  Age: 79 Year
  Sex: Female

DRUGS (1)
  1. PRADAXA [Suspect]
     Indication: ATRIAL FIBRILLATION
     Dosage: 300 MG
     Route: 048
     Dates: start: 20110101

REACTIONS (6)
  - OEDEMA PERIPHERAL [None]
  - PRURITUS [None]
  - FREQUENT BOWEL MOVEMENTS [None]
  - FLATULENCE [None]
  - PAIN IN EXTREMITY [None]
  - ABDOMINAL PAIN [None]
